FAERS Safety Report 6525037-8 (Version None)
Quarter: 2009Q4

REPORT INFORMATION
  Report Type: 
  Country: None (occurrence: None)
  Receive Date: 20091231
  Receipt Date: 20091231
  Transmission Date: 20100525
  Serious: Yes (Life-Threatening, Hospitalization)
  Sender: FDA-Public Use
  Company Number: None

PATIENT
  Sex: Male
  Weight: 84.8226 kg

DRUGS (3)
  1. PEG-INTRON [Suspect]
     Indication: HEPATITIS C
     Dosage: 120 MCG -0.5 ML WEEKLY SQ
     Route: 058
     Dates: start: 20091130, end: 20091230
  2. RIBAVIRIN 200 MG CAP 84 ZYDUS [Suspect]
     Indication: HEPATITIS C
     Dosage: 1000MG BID PO
     Route: 048
     Dates: start: 20091130, end: 20091230
  3. NEUPOGEN [Concomitant]

REACTIONS (3)
  - BLOOD DISORDER [None]
  - INFECTION [None]
  - MYOCARDIAL INFARCTION [None]
